FAERS Safety Report 6342290-4 (Version None)
Quarter: 2009Q3

REPORT INFORMATION
  Report Type: 
  Country: None (occurrence: None)
  Receive Date: 20090907
  Receipt Date: 20090831
  Transmission Date: 20100115
  Serious: Yes (Death, Life-Threatening)
  Sender: FDA-Public Use
  Company Number: US-BIOGENIDEC-2009BI016550

PATIENT
  Age: 61 Year
  Sex: Female

DRUGS (7)
  1. TYSABRI [Suspect]
     Indication: MULTIPLE SCLEROSIS
     Route: 042
     Dates: start: 20080722, end: 20090501
  2. BACLOFEN [Concomitant]
     Route: 048
     Dates: start: 20090401
  3. BACLOFEN [Concomitant]
     Route: 037
     Dates: start: 20080401
  4. OXYCODONE HCL EXTENDED-RELEASE [Concomitant]
     Route: 048
     Dates: start: 20090210
  5. VITAMIN B-12 [Concomitant]
     Route: 030
     Dates: start: 20090210
  6. VITAMIN B-12 [Concomitant]
     Route: 048
  7. MORPHINE [Concomitant]
     Route: 037

REACTIONS (6)
  - ASPIRATION [None]
  - DYSPEPSIA [None]
  - DYSPHAGIA [None]
  - MUSCLE SPASTICITY [None]
  - PELVIC PAIN [None]
  - RESPIRATORY ARREST [None]
